FAERS Safety Report 4493618-1 (Version None)
Quarter: 2004Q4

REPORT INFORMATION
  Report Type: 
  Country: None (occurrence: None)
  Receive Date: 20041105
  Receipt Date: 20041026
  Transmission Date: 20050328
  Serious: Yes (Life-Threatening, Hospitalization)
  Sender: FDA-Public Use
  Company Number: 200420663GDDC

PATIENT
  Age: 64 Year
  Sex: Male
  Weight: 89 kg

DRUGS (24)
  1. CAMPTOSAR [Suspect]
     Indication: OESOPHAGEAL CARCINOMA
     Route: 042
     Dates: start: 20040312, end: 20040928
  2. DOCETAXEL [Suspect]
     Indication: OESOPHAGEAL CARCINOMA
     Route: 042
     Dates: start: 20040312, end: 20040928
  3. CISPLATIN [Suspect]
     Indication: OESOPHAGEAL CARCINOMA
     Route: 042
     Dates: start: 20040312, end: 20040928
  4. ASPIRIN [Concomitant]
  5. ATARAX [Concomitant]
  6. ATIVAN [Concomitant]
  7. CELEXA [Concomitant]
  8. COLACE [Concomitant]
  9. COMPAZINE [Concomitant]
  10. DECADRON [Concomitant]
  11. DIGOXIN [Concomitant]
  12. DURAGESIC [Concomitant]
  13. FERROUS SULFATE TAB [Concomitant]
  14. LACTULOSE [Concomitant]
  15. LIPITOR [Concomitant]
  16. LOVENOX [Concomitant]
  17. MAGNESIUM [Concomitant]
  18. MEGACE [Concomitant]
  19. NEURONTIN [Concomitant]
  20. PANTOPRAZOLE SODIUM [Concomitant]
  21. PROVIGIL [Concomitant]
  22. SENNA [Concomitant]
  23. TOPROL-XL [Concomitant]
  24. ZOFRAN [Concomitant]

REACTIONS (3)
  - HAEMANGIOMA [None]
  - HYPOKALAEMIA [None]
  - METASTASES TO LIVER [None]
